FAERS Safety Report 20028402 (Version 2)
Quarter: 2021Q4

REPORT INFORMATION
  Report Type: Spontaneous
  Country: IN (occurrence: IN)
  Receive Date: 20211103
  Receipt Date: 20211119
  Transmission Date: 20220303
  Serious: No
  Sender: FDA-Public Use
  Company Number: IN-LUPIN LIMITED-2021-21215

PATIENT
  Age: 73 Year
  Sex: Female
  Weight: 72 kg

DRUGS (5)
  1. MOVICOL [Suspect]
     Active Substance: POLYETHYLENE GLYCOL 3350\POTASSIUM CHLORIDE\SODIUM BICARBONATE\SODIUM CHLORIDE
     Indication: Constipation
     Dosage: UNK (ONE DOSE)
     Route: 065
     Dates: start: 20211019
  2. Glucomet [Concomitant]
     Indication: Blood glucose abnormal
     Dosage: UNK, QD
     Route: 065
  3. ATEN [Concomitant]
     Indication: Blood pressure abnormal
     Dosage: UNK
     Route: 065
  4. GELUSIL [Concomitant]
     Active Substance: ALUMINUM HYDROXIDE\DIMETHICONE\MAGNESIUM HYDROXIDE
     Indication: Flatulence
     Dosage: UNK
     Route: 065
  5. GERBISA [Concomitant]
     Indication: Constipation
     Dosage: UNK
     Route: 065

REACTIONS (1)
  - Constipation [Not Recovered/Not Resolved]

NARRATIVE: CASE EVENT DATE: 20211020
